FAERS Safety Report 9175897 (Version 2)
Quarter: 2013Q1

REPORT INFORMATION
  Report Type: Spontaneous
  Country: US (occurrence: US)
  Receive Date: 20130320
  Receipt Date: 20130325
  Transmission Date: 20140127
  Serious: Yes (Death, Hospitalization, Other)
  Sender: FDA-Public Use
  Company Number: US-BAXTER-2013BAX009318

PATIENT
  Sex: Male

DRUGS (1)
  1. DIANEAL LOW CALCIUM (ULTRABAG) [Suspect]
     Indication: PERITONEAL DIALYSIS
     Route: 033
     Dates: end: 20130317

REACTIONS (6)
  - Death [Fatal]
  - Cardiac disorder [Unknown]
  - Pleural effusion [Unknown]
  - Aortic occlusion [Unknown]
  - Arterial thrombosis [Unknown]
  - Scar [Unknown]
